FAERS Safety Report 14163819 (Version 2)
Quarter: 2018Q1

REPORT INFORMATION
  Report Type: Spontaneous
  Country: US (occurrence: US)
  Receive Date: 20171107
  Receipt Date: 20180110
  Transmission Date: 20180508
  Serious: Yes (Other)
  Sender: FDA-Public Use
  Company Number: US-WEST-WARD PHARMACEUTICALS CORP.-US-H14001-17-03472

PATIENT
  Sex: Male

DRUGS (3)
  1. GABAPENTIN. [Concomitant]
     Active Substance: GABAPENTIN
     Indication: SEIZURE
     Route: 065
  2. KEPPRA [Concomitant]
     Active Substance: LEVETIRACETAM
     Indication: SEIZURE
     Route: 065
  3. BUPRENORPHINE. [Suspect]
     Active Substance: BUPRENORPHINE
     Indication: PAIN
     Route: 060
     Dates: start: 2009

REACTIONS (9)
  - Tooth erosion [Not Recovered/Not Resolved]
  - Tooth fracture [Not Recovered/Not Resolved]
  - Drug withdrawal syndrome [Unknown]
  - Oral discomfort [Recovered/Resolved]
  - Drug dependence [Unknown]
  - Cold sweat [Unknown]
  - Diarrhoea [Unknown]
  - Tremor [Unknown]
  - Abdominal discomfort [Unknown]

NARRATIVE: CASE EVENT DATE: 2009
